FAERS Safety Report 4989642-2 (Version None)
Quarter: 2006Q2

REPORT INFORMATION
  Report Type: 
  Country: None (occurrence: None)
  Receive Date: 20060502
  Receipt Date: 20051205
  Transmission Date: 20061013
  Serious: Yes (Hospitalization)
  Sender: FDA-Public Use
  Company Number: US-MERCK-0512USA00813

PATIENT
  Age: 52 Year
  Sex: Male
  Weight: 77 kg

DRUGS (12)
  1. VIOXX [Suspect]
     Indication: TRAUMATIC ARTHRITIS
     Route: 048
     Dates: start: 20000601, end: 20040930
  2. VIOXX [Suspect]
     Route: 048
     Dates: start: 20000601, end: 20040930
  3. VIOXX [Suspect]
     Route: 048
     Dates: start: 20000601, end: 20040930
  4. VIOXX [Suspect]
     Route: 048
     Dates: start: 20000601, end: 20040930
  5. VIOXX [Suspect]
     Route: 048
     Dates: start: 20000601, end: 20040930
  6. VIOXX [Suspect]
     Route: 048
     Dates: start: 20000601, end: 20040930
  7. XANAX [Concomitant]
     Indication: GENERALISED ANXIETY DISORDER
     Route: 065
     Dates: start: 19900101
  8. PAXIL [Concomitant]
     Route: 065
  9. FLEXERIL [Concomitant]
     Indication: TRAUMATIC ARTHRITIS
     Route: 065
  10. AXID [Concomitant]
     Route: 065
  11. NEURONTIN [Concomitant]
     Indication: TRAUMATIC ARTHRITIS
     Route: 065
  12. VICODIN [Concomitant]
     Indication: TRAUMATIC ARTHRITIS
     Route: 065
     Dates: start: 20000101, end: 20040101

REACTIONS (2)
  - CEREBROVASCULAR ACCIDENT [None]
  - PRESCRIBED OVERDOSE [None]
